FAERS Safety Report 9018310 (Version 1)
Quarter: 2013Q1

REPORT INFORMATION
  Report Type: Spontaneous
  Country: US (occurrence: None)
  Receive Date: 20130111
  Receipt Date: 20130111
  Transmission Date: 20140127
  Serious: No
  Sender: FDA-Public Use
  Company Number: None

PATIENT
  Age: 52 Year
  Sex: Female

DRUGS (1)
  1. AVONEX [Suspect]
     Dosage: INJECT 30MCG (0.5ML) INTRAMUSCULARLY ONCE A WEEK AS DIRECTED BY YOUR PHYSICIAN
     Route: 030

REACTIONS (1)
  - Chills [None]
